FAERS Safety Report 8594492-4 (Version None)
Quarter: 2012Q3

REPORT INFORMATION
  Report Type: 
  Country: None (occurrence: None)
  Receive Date: 20120801
  Receipt Date: 20120719
  Transmission Date: 20120928
  Serious: Yes (Other)
  Sender: FDA-Public Use
  Company Number: 2012SA052450

PATIENT
  Age: 45 Year
  Sex: Male

DRUGS (1)
  1. ICY HOT BALM [Suspect]
     Indication: PRODUCT USED FOR UNKNOWN INDICATION
     Dosage: ONCE;TOPICAL
     Route: 061
     Dates: start: 20120718, end: 20120718

REACTIONS (1)
  - APPLICATION SITE BURN [None]
